FAERS Safety Report 13933742 (Version 5)
Quarter: 2018Q4

REPORT INFORMATION
  Report Type: Spontaneous
  Country: US (occurrence: US)
  Receive Date: 20170904
  Receipt Date: 20181030
  Transmission Date: 20190204
  Serious: Yes (Hospitalization, Other)
  Sender: FDA-Public Use
  Company Number: US-DSJP-DSU-2017-134071

PATIENT

DRUGS (1)
  1. BENICAR [Suspect]
     Active Substance: OLMESARTAN MEDOXOMIL
     Indication: HYPERTENSION
     Dosage: 20 MG, QD
     Route: 048
     Dates: start: 20100421, end: 20161214

REACTIONS (10)
  - Erosive duodenitis [Not Recovered/Not Resolved]
  - Gastritis erosive [Unknown]
  - Syncope [Not Recovered/Not Resolved]
  - Sprue-like enteropathy [Recovering/Resolving]
  - Diaphragmatic hernia [Unknown]
  - Gastrooesophageal reflux disease [Recovering/Resolving]
  - Hiatus hernia [Not Recovered/Not Resolved]
  - Hypotension [Not Recovered/Not Resolved]
  - Large intestine polyp [Unknown]
  - Irritable bowel syndrome [Unknown]

NARRATIVE: CASE EVENT DATE: 20100421
